FAERS Safety Report 6615925-6 (Version None)
Quarter: 2010Q1

REPORT INFORMATION
  Report Type: 
  Country: None (occurrence: None)
  Receive Date: 20100305
  Receipt Date: 20100223
  Transmission Date: 20100710
  Serious: Yes (Other)
  Sender: FDA-Public Use
  Company Number: GXKR2010US02226

PATIENT
  Age: 37 Year
  Sex: Female

DRUGS (4)
  1. RIBAVIRIN (NGX) [Suspect]
     Indication: HEPATITIS C
     Dosage: 400 MG, BID
     Route: 065
  2. PEGYLATED INTERFERON ALFA-2A [Suspect]
     Indication: HEPATITIS C
     Dosage: 80 UG, QW (4 INJECTIONS, 2 IN EACH THIGH)
     Route: 058
     Dates: start: 20070101, end: 20071005
  3. EFFEXOR [Concomitant]
  4. NEXIUM [Concomitant]

REACTIONS (11)
  - BLISTER [None]
  - DERMATITIS BULLOUS [None]
  - INJECTION SITE REACTION [None]
  - INJECTION SITE VESICLES [None]
  - PRURITUS [None]
  - RASH ERYTHEMATOUS [None]
  - RASH GENERALISED [None]
  - RASH MACULO-PAPULAR [None]
  - RASH PAPULAR [None]
  - SKIN PLAQUE [None]
  - URTICARIA [None]
